FAERS Safety Report 8397854-3 (Version None)
Quarter: 2012Q2

REPORT INFORMATION
  Report Type: 
  Country: None (occurrence: None)
  Receive Date: 20120531
  Receipt Date: 20120524
  Transmission Date: 20120825
  Serious: Yes (Hospitalization, Other)
  Sender: FDA-Public Use
  Company Number: PHHY2012JP035828

PATIENT
  Sex: Male
  Weight: 52 kg

DRUGS (13)
  1. GLEEVEC [Suspect]
     Indication: CHRONIC MYELOID LEUKAEMIA
     Dosage: 300 MG DAILY
     Route: 048
     Dates: start: 20030108, end: 20070221
  2. FOLIAMIN [Concomitant]
     Indication: FOLATE DEFICIENCY
     Dosage: 15 MG
     Dates: start: 20050922
  3. JUSO [Concomitant]
     Dosage: 1500 MG
     Route: 048
     Dates: start: 20110218
  4. MOTILIUM [Concomitant]
     Indication: PROPHYLAXIS OF NAUSEA AND VOMITING
     Dosage: 30 MG
     Route: 048
     Dates: start: 20030108
  5. VITAMIN B12 [Concomitant]
     Indication: NEUROPATHY PERIPHERAL
     Dosage: 1500 UG,
     Dates: start: 20030108
  6. FERROUS CITRATE [Concomitant]
     Indication: IRON DEFICIENCY ANAEMIA
     Dosage: 100 MG, UNK
     Route: 048
     Dates: start: 20110513
  7. CALCIUM CARBONATE [Concomitant]
     Dosage: 1500 MG, UNK
     Route: 048
     Dates: start: 20100428
  8. RABEPRAZOLE SODIUM [Concomitant]
     Indication: GASTROOESOPHAGEAL REFLUX DISEASE
     Dosage: 10 MG,
     Dates: start: 20120406
  9. MUCOSOLVAN [Concomitant]
     Indication: SPUTUM RETENTION
     Dosage: 45 MG, UNK
     Route: 048
     Dates: start: 20090507
  10. GLEEVEC [Suspect]
     Dosage: 200 MG, DAILY
     Route: 048
     Dates: start: 20070222
  11. KALIMATE [Concomitant]
     Dosage: 5.4 G, UNK
     Route: 048
     Dates: start: 20110114
  12. EPOGIN [Concomitant]
     Dosage: UNK
     Route: 058
     Dates: start: 20120403
  13. SELBEX [Concomitant]
     Indication: PROPHYLAXIS
     Dosage: 150 MG,
     Dates: start: 20030108

REACTIONS (8)
  - DEPRESSED LEVEL OF CONSCIOUSNESS [None]
  - RENAL FAILURE CHRONIC [None]
  - TREMOR [None]
  - VOMITING [None]
  - DISORIENTATION [None]
  - CONDITION AGGRAVATED [None]
  - LIVER DISORDER [None]
  - HYPERAMMONAEMIA [None]
